FAERS Safety Report 7644029-9 (Version None)
Quarter: 2011Q3

REPORT INFORMATION
  Report Type: 
  Country: None (occurrence: None)
  Receive Date: 20110729
  Receipt Date: 20110721
  Transmission Date: 20111222
  Serious: Yes (Other)
  Sender: FDA-Public Use
  Company Number: US-TEVA-291910USA

PATIENT
  Sex: Female

DRUGS (1)
  1. PROAIR HFA [Suspect]

REACTIONS (4)
  - DYSPNOEA [None]
  - DEVICE MALFUNCTION [None]
  - DRUG INEFFECTIVE [None]
  - ASTHMA [None]
